FAERS Safety Report 16232709 (Version 1)
Quarter: 2019Q2

REPORT INFORMATION
  Report Type: Spontaneous
  Country: CA (occurrence: CA)
  Receive Date: 20190424
  Receipt Date: 20190424
  Transmission Date: 20190711
  Serious: Yes (Other)
  Sender: FDA-Public Use
  Company Number: CA-009507513-1904CAN009582

PATIENT
  Sex: Female

DRUGS (4)
  1. KEYTRUDA [Suspect]
     Active Substance: PEMBROLIZUMAB
     Indication: ALVEOLAR SOFT PART SARCOMA METASTATIC
     Route: 065
  2. INLYTA [Suspect]
     Active Substance: AXITINIB
     Dosage: 5.0 MILLIGRAM, 2 EVERY 1 DAY(S)
     Route: 065
  3. PAZOPANIB [Suspect]
     Active Substance: PAZOPANIB
     Indication: ALVEOLAR SOFT PART SARCOMA METASTATIC
     Route: 065
  4. INLYTA [Suspect]
     Active Substance: AXITINIB
     Indication: ALVEOLAR SOFT PART SARCOMA METASTATIC
     Dosage: 5.0 MILLIGRAM, 2 EVERY 1 DAY(S)
     Route: 065

REACTIONS (2)
  - Malignant neoplasm progression [Unknown]
  - Alveolar soft part sarcoma metastatic [Unknown]
